FAERS Safety Report 16122637 (Version 2)
Quarter: 2019Q2

REPORT INFORMATION
  Report Type: Spontaneous
  Country: IE (occurrence: IE)
  Receive Date: 20190327
  Receipt Date: 20190506
  Transmission Date: 20190711
  Serious: Yes (Hospitalization)
  Sender: FDA-Public Use
  Company Number: IE-009507513-1903IRL007896

PATIENT
  Age: 35 Year
  Sex: Female

DRUGS (4)
  1. CETROTIDE [Suspect]
     Active Substance: CETRORELIX ACETATE
     Dosage: 0.25 MILLIGRAM, Q24H
     Route: 058
     Dates: start: 20190212, end: 20190217
  2. CETROTIDE [Suspect]
     Active Substance: CETRORELIX ACETATE
     Dosage: 0.5 MG, Q24H
     Route: 058
     Dates: start: 20190218
  3. MENOPUR [Suspect]
     Active Substance: FOLLITROPIN\LUTEINIZING HORMONE
     Dosage: 112.5 IU, Q24H
     Route: 058
     Dates: start: 20190209, end: 20190217
  4. GONADOTROPIN, CHORIONIC [Suspect]
     Active Substance: CHORIOGONADOTROPIN ALFA
     Dosage: 10000 INTERNATIONAL UNIT
     Dates: start: 20190218

REACTIONS (4)
  - Abdominal distension [Recovered/Resolved]
  - Abdominal pain [Recovered/Resolved]
  - Ascites [Recovered/Resolved]
  - Ovarian hyperstimulation syndrome [Recovered/Resolved]

NARRATIVE: CASE EVENT DATE: 20190223
